FAERS Safety Report 6455954-9 (Version None)
Quarter: 2009Q4

REPORT INFORMATION
  Report Type: 
  Country: None (occurrence: None)
  Receive Date: 20091119
  Receipt Date: 20091111
  Transmission Date: 20100525
  Serious: Yes (Hospitalization)
  Sender: FDA-Public Use
  Company Number: 2009AL007266

PATIENT
  Age: 61 Year
  Sex: Female

DRUGS (2)
  1. HYDROCORTISONE 1%-P CREAM [Suspect]
     Dosage: PO
     Route: 048
  2. FLORINEF [Concomitant]

REACTIONS (1)
  - SPINAL FUSION SURGERY [None]
